FAERS Safety Report 24551092 (Version 1)
Quarter: 2024Q4

REPORT INFORMATION
  Report Type: Report from Study
  Country: ES (occurrence: ES)
  Receive Date: 20241025
  Receipt Date: 20241025
  Transmission Date: 20250115
  Serious: Yes (Other)
  Sender: BAUSCH AND LOMB
  Company Number: ES-SA-2024SA253852

PATIENT
  Age: 78 Year
  Sex: Female
  Weight: 61 kg

DRUGS (18)
  1. DEXAMETHASONE [Suspect]
     Active Substance: DEXAMETHASONE
     Indication: Plasma cell myeloma refractory
     Dosage: 20 MG, QW
     Route: 065
     Dates: start: 20240710, end: 20240806
  2. DEXAMETHASONE [Suspect]
     Active Substance: DEXAMETHASONE
     Dosage: 20 MG, QW
     Route: 065
     Dates: start: 20240807, end: 20240820
  3. ISATUXIMAB [Suspect]
     Active Substance: ISATUXIMAB
     Indication: Plasma cell myeloma refractory
     Route: 065
     Dates: start: 20240710, end: 20240806
  4. ISATUXIMAB [Suspect]
     Active Substance: ISATUXIMAB
     Dosage: 10 MG/KG, BIW
     Route: 065
     Dates: start: 20240807, end: 20240819
  5. POMALIDOMIDE [Suspect]
     Active Substance: POMALIDOMIDE
     Indication: Plasma cell myeloma refractory
     Dosage: 4 MG FROM DAY 1-21
     Route: 065
     Dates: start: 20240710, end: 20240806
  6. POMALIDOMIDE [Suspect]
     Active Substance: POMALIDOMIDE
     Dosage: 4 MG FROM DAY 1-21
     Route: 065
     Dates: start: 20240807, end: 20240819
  7. CHOLECALCIFEROL [Concomitant]
     Active Substance: CHOLECALCIFEROL
     Indication: Pain prophylaxis
     Dates: start: 20240710
  8. ZOMETA [Concomitant]
     Active Substance: ZOLEDRONIC ACID
     Indication: Pain prophylaxis
     Dates: start: 20240710
  9. OMEPRAZOL (OMEPRAZOLE) [Concomitant]
     Indication: Gastrointestinal disorder prophylaxis
     Dates: start: 20210825
  10. HIBOR [Concomitant]
     Indication: Thrombosis prophylaxis
     Dates: start: 20240710
  11. CLOMIPRAMINE [Concomitant]
     Active Substance: CLOMIPRAMINE
     Indication: Anxiety disorder
     Dates: start: 20191226
  12. OTILONIO BROMURO [Concomitant]
     Indication: Irritable bowel syndrome
     Dates: start: 20210218
  13. PULMICORT TURBUHALER [Concomitant]
     Active Substance: BUDESONIDE
     Indication: Rhinitis allergic
     Dates: start: 20180411
  14. SINGULAIR [Concomitant]
     Active Substance: MONTELUKAST SODIUM
     Indication: Rhinitis allergic
     Dates: start: 20130417
  15. TEPAZEPAN (DIAZEPAM;SULPIRIDE) [Concomitant]
     Indication: Anxiety disorder
     Dates: start: 20211029
  16. DEXCHLORPHENIRAMINE [Concomitant]
     Active Substance: DEXCHLORPHENIRAMINE
     Indication: Premedication
     Dosage: QCY, CYCLICAL
     Dates: start: 20240710
  17. RANITIDINA (RANITIDINE) [Concomitant]
     Indication: Premedication
     Dosage: QCY, CYCLICAL
     Dates: start: 20210710
  18. ACETAMINOPHEN [Concomitant]
     Active Substance: ACETAMINOPHEN
     Indication: Premedication
     Dosage: QCY, CYCLICAL
     Dates: start: 20240710

REACTIONS (3)
  - Neutropenia [Recovered/Resolved]
  - Dizziness [Recovering/Resolving]
  - Tremor [Not Recovered/Not Resolved]

NARRATIVE: CASE EVENT DATE: 20240729
